FAERS Safety Report 16755551 (Version 1)
Quarter: 2019Q3

REPORT INFORMATION
  Report Type: Spontaneous
  Country: US (occurrence: US)
  Receive Date: 20190829
  Receipt Date: 20190829
  Transmission Date: 20191005
  Serious: Yes (Other)
  Sender: FDA-Public Use
  Company Number: US-INSMED, INC.-US-INS-19-02909

PATIENT

DRUGS (3)
  1. LAMIRA NEBULIZER SYSTEM [Suspect]
     Active Substance: DEVICE
  2. ANTIBIOTIC [Concomitant]
     Active Substance: UNSPECIFIED INGREDIENT
     Dosage: VIA PERIPHERALLY INSERTED CENTRAL CATHETER (PIC LINE)
  3. ARIKAYCE [Suspect]
     Active Substance: AMIKACIN
     Indication: MYCOBACTERIAL INFECTION

REACTIONS (3)
  - Immune system disorder [Unknown]
  - Dysphagia [Unknown]
  - Walking disability [Unknown]
